FAERS Safety Report 15351473 (Version 1)
Quarter: 2018Q3

REPORT INFORMATION
  Report Type: Spontaneous
  Country: FR (occurrence: FR)
  Receive Date: 20180905
  Receipt Date: 20180905
  Transmission Date: 20181010
  Serious: Yes (Hospitalization)
  Sender: FDA-Public Use
  Company Number: FR-IGSA-SR10006573

PATIENT
  Sex: Male
  Weight: 80 kg

DRUGS (1)
  1. FLEBOGAMMA DIF [Suspect]
     Active Substance: HUMAN IMMUNOGLOBULIN G
     Indication: IMMUNODEFICIENCY COMMON VARIABLE
     Dosage: 200 ML, SINGLE
     Route: 058
     Dates: start: 20180627

REACTIONS (3)
  - Erythema [Recovered/Resolved]
  - Peripheral swelling [Recovered/Resolved]
  - Catheter site extravasation [Recovered/Resolved]

NARRATIVE: CASE EVENT DATE: 20180627
